FAERS Safety Report 11486088 (Version 2)
Quarter: 2015Q4

REPORT INFORMATION
  Report Type: Spontaneous
  Country: US (occurrence: US)
  Receive Date: 20150910
  Receipt Date: 20151013
  Transmission Date: 20160304
  Serious: Yes (Other)
  Sender: FDA-Public Use
  Company Number: US-ROCHE-1632387

PATIENT
  Sex: Male
  Weight: 50 kg

DRUGS (11)
  1. ESBRIET [Suspect]
     Active Substance: PIRFENIDONE
     Indication: IDIOPATHIC PULMONARY FIBROSIS
     Route: 048
     Dates: start: 20150107, end: 20150814
  2. ASPIRIN. [Concomitant]
     Active Substance: ASPIRIN
  3. ATORVASTATIN [Concomitant]
     Active Substance: ATORVASTATIN
  4. FLOVENT [Concomitant]
     Active Substance: FLUTICASONE PROPIONATE
  5. TAMSULOSIN [Concomitant]
     Active Substance: TAMSULOSIN
  6. PREVACID [Concomitant]
     Active Substance: LANSOPRAZOLE
  7. TESTOSTERONE. [Concomitant]
     Active Substance: TESTOSTERONE
  8. LEVSIN [Concomitant]
     Active Substance: HYOSCYAMINE SULFATE
  9. LOSARTAN. [Concomitant]
     Active Substance: LOSARTAN
  10. TADALAFIL [Concomitant]
     Active Substance: TADALAFIL
  11. TRIAMCINOLONE [Concomitant]
     Active Substance: TRIAMCINOLONE

REACTIONS (3)
  - Gastrointestinal disorder [Unknown]
  - Photosensitivity reaction [Unknown]
  - Hepatic function abnormal [Unknown]
